FAERS Safety Report 17617539 (Version 2)
Quarter: 2020Q2

REPORT INFORMATION
  Report Type: Spontaneous
  Country: DE (occurrence: DE)
  Receive Date: 20200402
  Receipt Date: 20200518
  Transmission Date: 20200713
  Serious: Yes (Other)
  Sender: FDA-Public Use
  Company Number: DE-009507513-2003DEU010874

PATIENT
  Age: 83 Year
  Sex: Female
  Weight: 54 kg

DRUGS (1)
  1. PEMBROLIZUMAB. [Suspect]
     Active Substance: PEMBROLIZUMAB
     Indication: TRANSITIONAL CELL CARCINOMA
     Dosage: 200 MILLIGRAM EVERY 3 WEEKS
     Dates: start: 20190822

REACTIONS (3)
  - Blood follicle stimulating hormone decreased [Unknown]
  - Hyperprolactinaemia [Recovered/Resolved]
  - Blood luteinising hormone decreased [Unknown]
